FAERS Safety Report 20089992 (Version 1)
Quarter: 2021Q4

REPORT INFORMATION
  Report Type: Spontaneous
  Country: DZ (occurrence: DZ)
  Receive Date: 20211119
  Receipt Date: 20211119
  Transmission Date: 20220303
  Serious: Yes (Death)
  Sender: FDA-Public Use
  Company Number: DZ-BAYER-2021A247951

PATIENT
  Age: 28 Year
  Sex: Male

DRUGS (1)
  1. VENTAVIS [Suspect]
     Active Substance: ILOPROST
     Indication: Pulmonary hypertension
     Dosage: 3 TIMES A DAY
     Route: 055

REACTIONS (2)
  - COVID-19 [Fatal]
  - Inappropriate schedule of product administration [Unknown]
